FAERS Safety Report 7075481-8 (Version None)
Quarter: 2010Q4

REPORT INFORMATION
  Report Type: 
  Country: None (occurrence: None)
  Receive Date: 20101030
  Receipt Date: 20100915
  Transmission Date: 20110411
  Serious: No
  Sender: FDA-Public Use
  Company Number: US-WYE-H17569910

PATIENT
  Sex: Female
  Weight: 61.29 kg

DRUGS (5)
  1. PRISTIQ [Suspect]
     Indication: DEPRESSION
     Route: 048
     Dates: start: 20100915
  2. FLEXERIL [Suspect]
     Dosage: UNKNOWN
  3. FIORICET [Suspect]
     Indication: MIGRAINE
     Dosage: UNKNOWN
  4. ALPRAZOLAM [Suspect]
     Indication: ANXIETY
     Dosage: UNKNOWN
  5. HYDROCODONE BITARTRATE + ACETAMINOPHEN [Suspect]
     Indication: MIGRAINE
     Dosage: UNKNOWN

REACTIONS (2)
  - DRUG EXPOSURE DURING PREGNANCY [None]
  - FEELING ABNORMAL [None]
